FAERS Safety Report 6458771-9 (Version None)
Quarter: 2009Q4

REPORT INFORMATION
  Report Type: 
  Country: None (occurrence: None)
  Receive Date: 20091127
  Receipt Date: 20091117
  Transmission Date: 20100525
  Serious: Yes (Other)
  Sender: FDA-Public Use
  Company Number: NL-ROCHE-670037

PATIENT
  Sex: Female

DRUGS (1)
  1. TAMIFLU [Suspect]
     Indication: INFLUENZA
     Route: 048
     Dates: start: 20091115, end: 20091116

REACTIONS (4)
  - ANXIETY [None]
  - HALLUCINATION [None]
  - RESTLESSNESS [None]
  - SLEEP DISORDER [None]
